FAERS Safety Report 16638624 (Version 1)
Quarter: 2019Q3

REPORT INFORMATION
  Report Type: Spontaneous
  Country: US (occurrence: US)
  Receive Date: 20190726
  Receipt Date: 20190726
  Transmission Date: 20191004
  Serious: Yes (Other)
  Sender: FDA-Public Use
  Company Number: US-JNJFOC-20190723930

PATIENT
  Sex: Male
  Weight: 117.59 kg

DRUGS (1)
  1. XARELTO [Suspect]
     Active Substance: RIVAROXABAN
     Indication: FACTOR V DEFICIENCY
     Route: 048
     Dates: start: 2016

REACTIONS (8)
  - Oedema peripheral [Unknown]
  - Off label use [Unknown]
  - Cellulitis [Unknown]
  - Product use in unapproved indication [Unknown]
  - Musculoskeletal discomfort [Unknown]
  - Weight increased [Unknown]
  - Back disorder [Unknown]
  - Cardiovascular disorder [Unknown]
